FAERS Safety Report 11605220 (Version 5)
Quarter: 2018Q2

REPORT INFORMATION
  Report Type: Spontaneous
  Country: HU (occurrence: HU)
  Receive Date: 20151007
  Receipt Date: 20180606
  Transmission Date: 20180711
  Serious: Yes (Death, Hospitalization, Other)
  Sender: FDA-Public Use
  Company Number: HU-BRISTOL-MYERS SQUIBB COMPANY-BMS-2015-066947

PATIENT
  Age: 66 Year
  Sex: Male

DRUGS (23)
  1. ASPIRIN                            /00002701/ [Suspect]
     Active Substance: ASPIRIN
     Indication: PULMONARY EMBOLISM
     Dosage: 100 MG, QD
     Route: 065
  2. TRIMETAZIDINE [Concomitant]
     Active Substance: TRIMETAZIDINE
     Indication: PRODUCT USED FOR UNKNOWN INDICATION
     Dosage: 35 MG, BID
     Route: 065
  3. ASPIRIN                            /00002701/ [Suspect]
     Active Substance: ASPIRIN
     Indication: ATRIAL FIBRILLATION
     Route: 065
  4. MILURIT [Concomitant]
     Active Substance: ALLOPURINOL
     Indication: ATRIAL FIBRILLATION
     Dosage: 300 MG, QD
     Route: 065
  5. NOACID                             /00057401/ [Concomitant]
     Indication: PULMONARY EMBOLISM
     Route: 065
  6. CLOPIDOGREL [Concomitant]
     Active Substance: CLOPIDOGREL BISULFATE
     Indication: PRODUCT USED FOR UNKNOWN INDICATION
     Dosage: 75 MG, QD
     Route: 065
  7. NOACID                             /00057401/ [Concomitant]
     Indication: ATRIAL FIBRILLATION
     Dosage: 40 MG, QD
     Route: 065
  8. TRAMADOL. [Concomitant]
     Active Substance: TRAMADOL
     Indication: PRODUCT USED FOR UNKNOWN INDICATION
     Dosage: 50 MG, PRN
     Route: 065
  9. GLICLAZIDE [Concomitant]
     Active Substance: GLICLAZIDE
     Indication: PRODUCT USED FOR UNKNOWN INDICATION
     Dosage: 30 MG, UNK
     Route: 065
  10. ELIQUIS [Suspect]
     Active Substance: APIXABAN
     Indication: CEREBROVASCULAR ACCIDENT PROPHYLAXIS
     Dosage: 5 MG, BID
     Route: 048
     Dates: start: 20150630
  11. TORVATEC [Concomitant]
     Indication: ATRIAL FIBRILLATION
     Dosage: 20 MG, QD
     Route: 065
  12. MEGYRINA [Concomitant]
     Indication: PULMONARY EMBOLISM
     Route: 065
  13. TORVATEC [Concomitant]
     Indication: PULMONARY EMBOLISM
     Route: 065
  14. NOVOMIX [Concomitant]
     Active Substance: INSULIN ASPART
     Indication: PRODUCT USED FOR UNKNOWN INDICATION
     Dosage: MORNING 18 IU, EVENING 16 IU
     Route: 065
  15. CONCOR [Concomitant]
     Active Substance: BISOPROLOL FUMARATE
     Indication: PULMONARY EMBOLISM
     Route: 065
  16. MILURIT [Concomitant]
     Active Substance: ALLOPURINOL
     Indication: PULMONARY EMBOLISM
     Route: 065
  17. MEGYRINA [Concomitant]
     Indication: ATRIAL FIBRILLATION
     Dosage: 40 MG/ML, QD
     Route: 065
  18. NEBIVOLOL. [Concomitant]
     Active Substance: NEBIVOLOL
     Indication: PRODUCT USED FOR UNKNOWN INDICATION
     Dosage: 2.5 MG, UNK
     Route: 065
  19. CONCOR [Concomitant]
     Active Substance: BISOPROLOL FUMARATE
     Indication: ATRIAL FIBRILLATION
     Dosage: 5 MG, BID
     Route: 065
  20. JUMEX [Concomitant]
     Active Substance: SELEGILINE HYDROCHLORIDE
     Indication: ATRIAL FIBRILLATION
     Dosage: 5 MG, BID
     Route: 065
  21. JUMEX [Concomitant]
     Active Substance: SELEGILINE HYDROCHLORIDE
     Indication: PULMONARY EMBOLISM
     Route: 065
  22. PANTOPRAZOL [Concomitant]
     Active Substance: PANTOPRAZOLE SODIUM
     Indication: PRODUCT USED FOR UNKNOWN INDICATION
     Dosage: 40 MG, QD
     Route: 065
  23. PROPAFENON                         /00546301/ [Concomitant]
     Active Substance: PROPAFENONE
     Indication: PRODUCT USED FOR UNKNOWN INDICATION
     Dosage: 150 MG, BID
     Route: 065

REACTIONS (13)
  - Transient ischaemic attack [Unknown]
  - Encephalomalacia [Unknown]
  - Femur fracture [Unknown]
  - Aspiration [Fatal]
  - Fall [Unknown]
  - Sinus tachycardia [Fatal]
  - Muscular weakness [Recovered/Resolved]
  - Surgery [Unknown]
  - Transfusion [Unknown]
  - Cardiopulmonary failure [Fatal]
  - Cerebrovascular insufficiency [Unknown]
  - Atrial fibrillation [Fatal]
  - Anaemia [Unknown]

NARRATIVE: CASE EVENT DATE: 20151011
